FAERS Safety Report 4851732-2 (Version None)
Quarter: 2005Q4

REPORT INFORMATION
  Report Type: 
  Country: None (occurrence: None)
  Receive Date: 20051213
  Receipt Date: 20051118
  Transmission Date: 20060501
  Serious: Yes (Death, Hospitalization)
  Sender: FDA-Public Use
  Company Number: US-KINGPHARMUSA00001-K200501500

PATIENT
  Age: 75 Year
  Sex: Male

DRUGS (16)
  1. ALTACE [Suspect]
     Indication: ESSENTIAL HYPERTENSION
     Dates: start: 20050601, end: 20050101
  2. ALTACE [Suspect]
     Dosage: 5 MG, QD
     Route: 048
     Dates: start: 20050901
  3. NEXIUM [Suspect]
     Dosage: 40 MG, QD
     Route: 048
     Dates: end: 20050928
  4. SELOKEN [Suspect]
     Indication: ATRIAL FIBRILLATION
     Dosage: 50 MG, BID
     Route: 048
     Dates: start: 20050101, end: 20050928
  5. VFEND [Suspect]
     Indication: CANDIDIASIS
     Dosage: 400 MG, QD
     Route: 048
     Dates: start: 20050818, end: 20050922
  6. DIFFU K [Suspect]
     Dosage: 1 U, QD
     Route: 048
     Dates: start: 20050914, end: 20050914
  7. DIFFU K [Suspect]
     Dosage: 6 U, QD
     Route: 048
     Dates: start: 20050916, end: 20050916
  8. DIFFU K [Suspect]
     Dosage: 3 U, QD
     Dates: start: 20050917, end: 20050918
  9. AMLOR [Suspect]
     Indication: ESSENTIAL HYPERTENSION
     Dosage: 10 MG, QD
     Route: 048
     Dates: start: 20050901, end: 20050928
  10. MAG 2 [Concomitant]
     Dosage: 6AMP, QD
     Dates: end: 20050928
  11. COUMADIN [Concomitant]
     Dosage: 2.5 MG, UNK
     Dates: end: 20050928
  12. ZOCOR [Concomitant]
     Dates: end: 20050928
  13. DOXAZOSIN [Concomitant]
     Dates: end: 20050928
  14. TARDYFERON [Concomitant]
     Dates: end: 20050928
  15. LASILIX [Concomitant]
     Dates: end: 20050928
  16. PREVISCAN [Concomitant]
     Dates: end: 20050831

REACTIONS (13)
  - AGITATION [None]
  - ATRIAL FIBRILLATION [None]
  - BLOOD POTASSIUM DECREASED [None]
  - CARDIAC ARREST [None]
  - CONFUSIONAL STATE [None]
  - DYSPNOEA [None]
  - ELECTROCARDIOGRAM QRS COMPLEX PROLONGED [None]
  - HAEMODYNAMIC INSTABILITY [None]
  - OXYGEN SATURATION DECREASED [None]
  - RENAL FAILURE [None]
  - RENAL FAILURE ACUTE [None]
  - RESPIRATORY ARREST [None]
  - TACHYCARDIA [None]
